FAERS Safety Report 25615124 (Version 1)
Quarter: 2025Q3

REPORT INFORMATION
  Report Type: Spontaneous
  Country: US (occurrence: US)
  Receive Date: 20250729
  Receipt Date: 20250729
  Transmission Date: 20251020
  Serious: Yes (Hospitalization)
  Sender: BAUSCH AND LOMB
  Company Number: US-MLMSERVICE-20250717-PI584151-00117-1

PATIENT
  Age: 40 Year
  Sex: Male

DRUGS (3)
  1. DEXAMETHASONE [Suspect]
     Active Substance: DEXAMETHASONE
     Indication: Clear cell renal cell carcinoma
     Route: 065
  2. NELVUTAMIG [Suspect]
     Active Substance: NELVUTAMIG
     Indication: Clear cell renal cell carcinoma
     Route: 065
  3. NIVOLUMAB [Suspect]
     Active Substance: NIVOLUMAB
     Indication: Clear cell renal cell carcinoma
     Route: 065

REACTIONS (2)
  - Hepatitis B reactivation [Recovering/Resolving]
  - Liver injury [Recovering/Resolving]
